FAERS Safety Report 22635401 (Version 1)
Quarter: 2023Q2

REPORT INFORMATION
  Report Type: Spontaneous
  Country: US (occurrence: None)
  Receive Date: 20230620
  Receipt Date: 20230620
  Transmission Date: 20230721
  Serious: Yes (Hospitalization)
  Sender: FDA-Public Use
  Company Number: None

PATIENT
  Age: 69 Year
  Sex: Male

DRUGS (27)
  1. NEXAVAR [Suspect]
     Active Substance: SORAFENIB
     Indication: Hepatic cancer
     Dosage: FREQUENCY : DAILY;?
     Route: 048
  2. AMLODIPINE [Concomitant]
     Active Substance: AMLODIPINE BESYLATE
  3. ASPIRIN [Concomitant]
     Active Substance: ASPIRIN
  4. BUCLIZINE [Concomitant]
     Active Substance: BUCLIZINE
  5. CARVEDILOL [Concomitant]
     Active Substance: CARVEDILOL
  6. CHOLESTYRAMINE [Concomitant]
     Active Substance: CHOLESTYRAMINE
  7. CLOTRIMAZOLE [Concomitant]
     Active Substance: CLOTRIMAZOLE
  8. FLOVENT [Concomitant]
     Active Substance: FLUTICASONE PROPIONATE
  9. FOLIC ACID [Concomitant]
     Active Substance: FOLIC ACID
  10. LASIX [Concomitant]
     Active Substance: FUROSEMIDE
  11. HUMALOG [Concomitant]
     Active Substance: INSULIN LISPRO
  12. IMODIUM [Concomitant]
     Active Substance: LOPERAMIDE HYDROCHLORIDE
  13. LEVOTHYROXINE [Concomitant]
     Active Substance: LEVOTHYROXINE
  14. LISINOPRIL [Concomitant]
     Active Substance: LISINOPRIL
  15. MEGESTROL [Concomitant]
     Active Substance: MEGESTROL
  16. MELATONIN [Concomitant]
     Active Substance: MELATONIN
  17. METOPROLOL SUCCINATE [Concomitant]
     Active Substance: METOPROLOL SUCCINATE
  18. MIRTAZAPINE [Concomitant]
     Active Substance: MIRTAZAPINE
  19. MULTIVITAMIN ADULTS [Concomitant]
  20. NAPROXEN [Concomitant]
     Active Substance: NAPROXEN
  21. OZEMPIC [Concomitant]
     Active Substance: SEMAGLUTIDE
  22. CRESTOR [Concomitant]
     Active Substance: ROSUVASTATIN CALCIUM
  23. SPIRONOLACTONE [Concomitant]
     Active Substance: SPIRONOLACTONE
  24. STOOL SOFTENER LAXATIVE [Concomitant]
  25. TAMSULOSIN [Concomitant]
     Active Substance: TAMSULOSIN
  26. VIT B+C COMPLEX [Concomitant]
  27. VITAMIN D NOS [Concomitant]
     Active Substance: VITAMIN D NOS

REACTIONS (4)
  - Fluid retention [None]
  - Weight increased [None]
  - Diarrhoea [None]
  - Abdominal pain upper [None]

NARRATIVE: CASE EVENT DATE: 20230613
